FAERS Safety Report 12596981 (Version 1)
Quarter: 2016Q3

REPORT INFORMATION
  Report Type: Spontaneous
  Country: GB (occurrence: GB)
  Receive Date: 20160727
  Receipt Date: 20160727
  Transmission Date: 20161109
  Serious: Yes (Other)
  Sender: FDA-Public Use
  Company Number: GB-CIPLA LTD.-2016GB09958

PATIENT

DRUGS (2)
  1. ANASTROZOLE. [Suspect]
     Active Substance: ANASTROZOLE
     Dosage: UNK
     Route: 048
     Dates: start: 2010
  2. GOSERELIN [Suspect]
     Active Substance: GOSERELIN
     Dosage: UNK
     Route: 058
     Dates: start: 2007

REACTIONS (1)
  - Disease progression [Unknown]

NARRATIVE: CASE EVENT DATE: 2010
